FAERS Safety Report 18464250 (Version 1)
Quarter: 2020Q4

REPORT INFORMATION
  Report Type: Report from Study
  Country: KR (occurrence: KR)
  Receive Date: 20201104
  Receipt Date: 20201104
  Transmission Date: 20210114
  Serious: Yes (Hospitalization)
  Sender: FDA-Public Use
  Company Number: KR-JAZZ-2020-KR-011215

PATIENT
  Age: 17 Year
  Sex: Female
  Weight: 40.65 kg

DRUGS (20)
  1. HEPARIN [Suspect]
     Active Substance: HEPARIN SODIUM
     Indication: PROPHYLAXIS
     Dosage: 3800 INTERNATIONAL UNIT, QD
     Route: 042
     Dates: start: 20200806, end: 20200809
  2. ALLOPURINOL. [Concomitant]
     Active Substance: ALLOPURINOL
     Indication: BLOOD URIC ACID
     Dosage: 50 MILLIGRAM, TID
     Route: 048
     Dates: start: 20200802, end: 20200812
  3. FUROSEMIDE. [Concomitant]
     Active Substance: FUROSEMIDE
     Dosage: 20 MILLIGRAM, BID
     Route: 042
     Dates: start: 20200807, end: 20200811
  4. DEFITELIO [Suspect]
     Active Substance: DEFIBROTIDE SODIUM
     Dosage: 250 MILLIGRAM, QID
     Route: 042
     Dates: start: 20200731, end: 20200803
  5. DEFITELIO [Suspect]
     Active Substance: DEFIBROTIDE SODIUM
     Dosage: 260 MILLIGRAM, QID
     Route: 042
     Dates: start: 20200811, end: 20200818
  6. DEFITELIO [Suspect]
     Active Substance: DEFIBROTIDE SODIUM
     Dosage: 300 MILLIGRAM, QID
     Route: 042
     Dates: start: 20200819
  7. MAGNESIUM LACTATE [Concomitant]
     Active Substance: MAGNESIUM LACTATE
     Indication: MINERAL SUPPLEMENTATION
     Dosage: 2 TABLETS, TID
     Route: 048
     Dates: start: 20200728, end: 20200728
  8. MAGNESIUM LACTATE [Concomitant]
     Active Substance: MAGNESIUM LACTATE
     Dosage: 3 TABLETS, TID
     Route: 048
     Dates: start: 20200729, end: 20200818
  9. UDCA [Concomitant]
     Active Substance: URSODIOL
     Indication: LIVER DISORDER
     Dosage: 200 MILLIGRAM, TID
     Route: 048
     Dates: start: 20200721
  10. AMOXICILLIN. [Concomitant]
     Active Substance: AMOXICILLIN
     Indication: PROPHYLAXIS
     Dosage: 250 MILLIGRAM, BID
     Route: 048
     Dates: start: 20200729
  11. SPIRONOLACTONE. [Concomitant]
     Active Substance: SPIRONOLACTONE
     Dosage: 37.5 MILLIGRAM, BID
     Route: 048
     Dates: start: 20200804
  12. FUROSEMIDE. [Concomitant]
     Active Substance: FUROSEMIDE
     Indication: POLYURIA
     Dosage: 44.4 MILLIGRAM, QD
     Route: 042
     Dates: start: 20200804, end: 20200806
  13. DEFITELIO [Suspect]
     Active Substance: DEFIBROTIDE SODIUM
     Indication: VENOOCCLUSIVE DISEASE
     Dosage: 200 MILLIGRAM, QID
     Route: 042
     Dates: start: 20200720, end: 20200730
  14. SPIRONOLACTONE. [Concomitant]
     Active Substance: SPIRONOLACTONE
     Indication: BLOOD PRESSURE MEASUREMENT
     Dosage: 25 MILLIGRAM, BID
     Route: 048
     Dates: start: 20200731, end: 20200803
  15. DEFITELIO [Suspect]
     Active Substance: DEFIBROTIDE SODIUM
     Dosage: 260 MILLIGRAM, QID
     Route: 042
     Dates: start: 20200804, end: 20200809
  16. AMLODIPINE [Concomitant]
     Active Substance: AMLODIPINE BESYLATE
     Indication: BLOOD PRESSURE MEASUREMENT
     Dosage: 5 MILLIGRAM, QD
     Route: 048
     Dates: start: 20200720
  17. LOSARTAN. [Concomitant]
     Active Substance: LOSARTAN
     Indication: BLOOD PRESSURE MEASUREMENT
     Dosage: 25 MILLIGRAM, QD
     Route: 048
     Dates: start: 20200723
  18. METRONIDAZOLE. [Concomitant]
     Active Substance: METRONIDAZOLE
     Indication: CLOSTRIDIUM DIFFICILE INFECTION
     Dosage: 500 MILLIGRAM, BID
     Route: 048
     Dates: start: 20200808, end: 20200814
  19. ECULIZUMAB [Concomitant]
     Active Substance: ECULIZUMAB
     Indication: THROMBOTIC MICROANGIOPATHY
     Dosage: 600 MILLIGRAM, QD
     Route: 042
     Dates: start: 20200729, end: 20200729
  20. ECULIZUMAB [Concomitant]
     Active Substance: ECULIZUMAB
     Dosage: 900 MILLIGRAM, QD
     Route: 042
     Dates: start: 20200805, end: 20200805

REACTIONS (1)
  - Haematuria [Recovered/Resolved]

NARRATIVE: CASE EVENT DATE: 20200809
